FAERS Safety Report 4785093-4 (Version None)
Quarter: 2005Q3

REPORT INFORMATION
  Report Type: 
  Country: None (occurrence: None)
  Receive Date: 20050928
  Receipt Date: 20050829
  Transmission Date: 20060218
  Serious: Yes (Other)
  Sender: FDA-Public Use
  Company Number: 2005127677

PATIENT
  Sex: Female

DRUGS (1)
  1. VIAGRA [Suspect]
     Indication: PULMONARY HYPERTENSION
     Dosage: 150 MG (50 MG, 3 IN 1 D), ORAL
     Route: 048

REACTIONS (2)
  - LEUKOPENIA [None]
  - VULVOVAGINITIS [None]
